FAERS Safety Report 5118064-9 (Version None)
Quarter: 2006Q3

REPORT INFORMATION
  Report Type: 
  Country: None (occurrence: None)
  Receive Date: 20060929
  Receipt Date: 20060823
  Transmission Date: 20061208
  Serious: Yes (Hospitalization)
  Sender: FDA-Public Use
  Company Number: CM-MERCK-0608USA05729

PATIENT
  Age: 24 Year
  Sex: Male

DRUGS (1)
  1. STROMECTOL [Suspect]
     Route: 048
     Dates: start: 20060525, end: 20060525

REACTIONS (5)
  - ASTHENIA [None]
  - COMA [None]
  - DECUBITUS ULCER [None]
  - MENTAL STATUS CHANGES [None]
  - OCULAR HYPERAEMIA [None]
